FAERS Safety Report 8304031-0 (Version None)
Quarter: 2012Q2

REPORT INFORMATION
  Report Type: 
  Country: None (occurrence: None)
  Receive Date: 20120418
  Receipt Date: 20110823
  Transmission Date: 20120825
  Serious: No
  Sender: FDA-Public Use
  Company Number: AEUSA201100230

PATIENT
  Age: 33 Year
  Sex: Male
  Weight: 80.7 kg

DRUGS (1)
  1. PROLASTIN-C [Suspect]
     Indication: ALPHA-1 ANTI-TRYPSIN DEFICIENCY
     Dosage: 4842 MG;QW;IV
     Route: 042
     Dates: start: 20110801

REACTIONS (2)
  - VISION BLURRED [None]
  - EYE DISORDER [None]
